FAERS Safety Report 13150782 (Version 1)
Quarter: 2017Q1

REPORT INFORMATION
  Report Type: Spontaneous
  Country: US (occurrence: US)
  Receive Date: 20170122
  Receipt Date: 20170122
  Transmission Date: 20170428
  Serious: Yes (Hospitalization, Disabling)
  Sender: FDA-Public Use
  Company Number: None

PATIENT
  Age: 59 Year
  Sex: Male
  Weight: 74.25 kg

DRUGS (2)
  1. CIPROFLOXACIN. [Suspect]
     Active Substance: CIPROFLOXACIN
     Indication: EPIGASTRIC DISCOMFORT
     Dosage: ?          QUANTITY:14 TABLET(S);?
     Route: 048
     Dates: start: 20170108, end: 20170110
  2. PANADOL [Concomitant]
     Active Substance: ACETAMINOPHEN

REACTIONS (8)
  - Neuralgia [None]
  - Pain [None]
  - Abasia [None]
  - Anxiety [None]
  - Nervous system disorder [None]
  - Sleep disorder [None]
  - Asthenia [None]
  - Tendon rupture [None]

NARRATIVE: CASE EVENT DATE: 20170110
